FAERS Safety Report 8228937-6 (Version None)
Quarter: 2012Q1

REPORT INFORMATION
  Report Type: 
  Country: None (occurrence: None)
  Receive Date: 20120322
  Receipt Date: 20120312
  Transmission Date: 20120608
  Serious: Yes (Hospitalization)
  Sender: FDA-Public Use
  Company Number: US-SANOFI-AVENTIS-2012SA012060

PATIENT
  Age: 82 Year
  Sex: Male
  Weight: 95.45 kg

DRUGS (1)
  1. LANTUS [Suspect]
     Dosage: DOSE:19 UNIT(S)
     Route: 058

REACTIONS (2)
  - PNEUMONIA [None]
  - BLOOD GLUCOSE INCREASED [None]
